FAERS Safety Report 25169347 (Version 1)
Quarter: 2025Q2

REPORT INFORMATION
  Report Type: Spontaneous
  Country: US (occurrence: US)
  Receive Date: 20250407
  Receipt Date: 20250407
  Transmission Date: 20250717
  Serious: No
  Sender: SANOFI AVENTIS
  Company Number: US-SA-2025SA098409

PATIENT
  Sex: Female

DRUGS (10)
  1. DUPIXENT [Suspect]
     Active Substance: DUPILUMAB
     Indication: Nasal polyps
     Dosage: 300 MG, QOW
     Route: 058
  2. ALBUTEIN [Concomitant]
     Active Substance: ALBUMIN HUMAN
  3. BETAMETHASONE [Concomitant]
     Active Substance: BETAMETHASONE
  4. BUDESONIDE [Concomitant]
     Active Substance: BUDESONIDE
  5. ESTRACE [Concomitant]
     Active Substance: ESTRADIOL
  6. FLUTICASONE [Concomitant]
     Active Substance: FLUTICASONE
  7. IPRATROPIUM [Concomitant]
     Active Substance: IPRATROPIUM
  8. SIMVASTATIN [Concomitant]
     Active Substance: SIMVASTATIN
  9. SINGULAIR [Concomitant]
     Active Substance: MONTELUKAST SODIUM
  10. SYMBICORT [Concomitant]
     Active Substance: BUDESONIDE\FORMOTEROL FUMARATE DIHYDRATE

REACTIONS (1)
  - Insomnia [Not Recovered/Not Resolved]
